FAERS Safety Report 9622463 (Version 2)
Quarter: 2013Q4

REPORT INFORMATION
  Report Type: Spontaneous
  Country: US (occurrence: US)
  Receive Date: 20131015
  Receipt Date: 20131015
  Transmission Date: 20140711
  Serious: No
  Sender: FDA-Public Use
  Company Number: US-PURDUE-USA-2012-0086363

PATIENT
  Sex: Female
  Weight: 58.96 kg

DRUGS (4)
  1. BUTRANS [Suspect]
     Indication: NECK PAIN
     Dosage: 10 MCG/HR, UNK
     Route: 062
     Dates: start: 20120117, end: 201204
  2. OXYCODONE / ACETAMINOPHEN [Concomitant]
     Indication: BREAKTHROUGH PAIN
     Dosage: 10/325 MG
     Dates: start: 20120320
  3. YAZ                                /06358701/ [Concomitant]
     Indication: CONTRACEPTION
     Dosage: .02-3 UNK
  4. NUCYNTA [Concomitant]
     Indication: BREAKTHROUGH PAIN
     Dosage: 50 MG, UNK
     Dates: start: 20120223, end: 20120320

REACTIONS (4)
  - Application site discolouration [Recovered/Resolved]
  - Application site rash [Recovered/Resolved]
  - Pruritus [Recovered/Resolved]
  - Dermatitis contact [Recovered/Resolved]
